FAERS Safety Report 5708945-7 (Version None)
Quarter: 2008Q2

REPORT INFORMATION
  Report Type: 
  Country: None (occurrence: None)
  Receive Date: 20080414
  Receipt Date: 20080414
  Transmission Date: 20081010
  Serious: Yes (Other)
  Sender: FDA-Public Use
  Company Number: None

PATIENT
  Age: 35 Year
  Sex: Female

DRUGS (6)
  1. AMBIEN CR [Suspect]
     Indication: INSOMNIA
     Dosage: 12.5MG ONCE A DAY -QHS- BUCCAL
     Route: 002
  2. CAPTOPRIL [Concomitant]
  3. HYDROCHLOROTHIAZIDE [Concomitant]
  4. ATORVASTATIN CALCIUM [Concomitant]
  5. CENTRUM VITAMIN [Concomitant]
  6. MIDRIN [Concomitant]

REACTIONS (2)
  - MEMORY IMPAIRMENT [None]
  - SLEEP-RELATED EATING DISORDER [None]
